FAERS Safety Report 20213010 (Version 2)
Quarter: 2022Q1

REPORT INFORMATION
  Report Type: Spontaneous
  Country: US (occurrence: US)
  Receive Date: 20211221
  Receipt Date: 20220103
  Transmission Date: 20220424
  Serious: No
  Sender: FDA-Public Use
  Company Number: US-SA-SAC20211215000580

PATIENT
  Age: 35 Year
  Sex: Female

DRUGS (1)
  1. CABLIVI [Suspect]
     Active Substance: CAPLACIZUMAB-YHDP
     Indication: Systemic lupus erythematosus
     Dosage: 11 MG, QD
     Route: 058
     Dates: start: 20211201

REACTIONS (3)
  - Gingival bleeding [Unknown]
  - Product use in unapproved indication [Unknown]
  - Heavy menstrual bleeding [Unknown]

NARRATIVE: CASE EVENT DATE: 20211201
